FAERS Safety Report 8598063-5 (Version None)
Quarter: 2012Q3

REPORT INFORMATION
  Report Type: 
  Country: None (occurrence: None)
  Receive Date: 20120816
  Receipt Date: 20120807
  Transmission Date: 20120928
  Serious: Yes (Other)
  Sender: FDA-Public Use
  Company Number: US-JNJFOC-20120803480

PATIENT
  Sex: Female
  Weight: 111.81 kg

DRUGS (5)
  1. INFLIXIMAB, RECOMBINANT [Suspect]
     Dosage: 2ND INFUSION
     Route: 042
     Dates: start: 20120723
  2. INFLIXIMAB, RECOMBINANT [Suspect]
     Indication: PSORIASIS
     Dosage: 2ND INFUSION
     Route: 042
     Dates: start: 20120723
  3. INFLIXIMAB, RECOMBINANT [Suspect]
     Dosage: FIRST INFUSION
     Route: 042
     Dates: start: 20120709
  4. STEROIDS NOS [Concomitant]
  5. INFLIXIMAB, RECOMBINANT [Suspect]
     Indication: PSORIATIC ARTHROPATHY
     Dosage: FIRST INFUSION
     Route: 042
     Dates: start: 20120709

REACTIONS (1)
  - HERPES ZOSTER [None]
